FAERS Safety Report 6114644-2 (Version None)
Quarter: 2009Q1

REPORT INFORMATION
  Report Type: 
  Country: None (occurrence: None)
  Receive Date: 20090313
  Receipt Date: 20090312
  Transmission Date: 20090719
  Serious: Yes (Death, Hospitalization)
  Sender: FDA-Public Use
  Company Number: US-BIOGENIDEC-2008BI020256

PATIENT
  Age: 60 Year
  Sex: Female

DRUGS (19)
  1. AVONEX [Suspect]
     Indication: MULTIPLE SCLEROSIS
     Route: 030
  2. AVONEX [Suspect]
     Route: 030
     Dates: start: 20040701
  3. AVONEX [Suspect]
     Route: 030
     Dates: start: 20080201, end: 20080801
  4. LASIX [Concomitant]
     Indication: DRUG USE FOR UNKNOWN INDICATION
  5. SYNTHROID [Concomitant]
     Indication: DRUG USE FOR UNKNOWN INDICATION
  6. TEGRETOL [Concomitant]
     Indication: DRUG USE FOR UNKNOWN INDICATION
  7. LAMICTAL [Concomitant]
     Indication: DRUG USE FOR UNKNOWN INDICATION
  8. DETROL LA [Concomitant]
     Indication: DRUG USE FOR UNKNOWN INDICATION
  9. OS-CAL PLUS D [Concomitant]
     Indication: DRUG USE FOR UNKNOWN INDICATION
  10. ASCORBIC ACID [Concomitant]
     Indication: DRUG USE FOR UNKNOWN INDICATION
  11. ADDERALL 10 [Concomitant]
     Indication: DEPRESSION
  12. ZOLOFT [Concomitant]
     Indication: DEPRESSION
  13. ARIMIDEX [Concomitant]
     Indication: DRUG USE FOR UNKNOWN INDICATION
  14. LIPITOR [Concomitant]
     Indication: DRUG USE FOR UNKNOWN INDICATION
  15. LISINOPRIL [Concomitant]
     Indication: DRUG USE FOR UNKNOWN INDICATION
  16. METOPROLOL SUCCINATE [Concomitant]
     Indication: DRUG USE FOR UNKNOWN INDICATION
  17. MULTI-VITAMINS [Concomitant]
     Indication: DRUG USE FOR UNKNOWN INDICATION
  18. TYLENOL (CAPLET) [Concomitant]
     Indication: DRUG USE FOR UNKNOWN INDICATION
  19. TRAMADOL HCL [Concomitant]
     Indication: DRUG USE FOR UNKNOWN INDICATION

REACTIONS (4)
  - EXCORIATION [None]
  - FALL [None]
  - GLIOBLASTOMA [None]
  - MULTIPLE SCLEROSIS RELAPSE [None]
